FAERS Safety Report 8905542 (Version 1)
Quarter: 2012Q4

REPORT INFORMATION
  Report Type: 
  Country: GB (occurrence: GB)
  Receive Date: 20121111
  Receipt Date: 20121111
  Transmission Date: 20130627
  Serious: Yes (Hospitalization)
  Sender: FDA-Public Use
  Company Number: PHHO2012GB016146

PATIENT
  Age: 68 Year
  Sex: Male
  Weight: 73 kg

DRUGS (2)
  1. ZOLEDRONATE [Suspect]
     Indication: PROSTATE CANCER
     Dosage: 4 mg, UNK
     Route: 042
     Dates: start: 20120110, end: 20121031
  2. DOCETAXEL [Suspect]
     Indication: PROSTATE CANCER
     Dosage: 140 mg, UNK
     Route: 042
     Dates: start: 20120913

REACTIONS (1)
  - Neutropenic sepsis [Not Recovered/Not Resolved]
